FAERS Safety Report 7604567-1 (Version None)
Quarter: 2011Q3

REPORT INFORMATION
  Report Type: 
  Country: None (occurrence: None)
  Receive Date: 20110712
  Receipt Date: 20110707
  Transmission Date: 20111222
  Serious: Yes (Hospitalization, Other)
  Sender: FDA-Public Use
  Company Number: US-AMGEN-QUU386693

PATIENT
  Age: 42 Year
  Sex: Male

DRUGS (3)
  1. METHOTREXATE [Concomitant]
     Dates: start: 19970101
  2. ENBREL [Suspect]
     Indication: PSORIATIC ARTHROPATHY
     Dosage: 50 MG, 2 TIMES/WK
     Dates: start: 20010101
  3. ENBREL [Suspect]
     Indication: PSORIASIS
     Dosage: 50 MG, 2 TIMES/WK
     Dates: start: 20010101

REACTIONS (19)
  - ABDOMINAL DISTENSION [None]
  - THERAPEUTIC RESPONSE DECREASED [None]
  - PSORIATIC ARTHROPATHY [None]
  - RASH [None]
  - ABDOMINAL PAIN [None]
  - DIARRHOEA [None]
  - ERYTHEMA [None]
  - PETECHIAE [None]
  - INJECTION SITE PAIN [None]
  - ABDOMINAL PAIN UPPER [None]
  - SKIN DISCOLOURATION [None]
  - RECTAL HAEMORRHAGE [None]
  - VISUAL ACUITY REDUCED [None]
  - PAIN OF SKIN [None]
  - SINUS CONGESTION [None]
  - RASH MACULAR [None]
  - H1N1 INFLUENZA [None]
  - PHARYNGITIS [None]
  - HYPOAESTHESIA [None]
